FAERS Safety Report 9877778 (Version 1)
Quarter: 2014Q1

REPORT INFORMATION
  Report Type: Spontaneous
  Country: DE (occurrence: DE)
  Receive Date: 20140206
  Receipt Date: 20140206
  Transmission Date: 20141002
  Serious: Yes (Hospitalization)
  Sender: FDA-Public Use
  Company Number: DE-SA-2014SA012580

PATIENT
  Age: 65 Year
  Sex: Male
  Weight: 86 kg

DRUGS (5)
  1. TRENTAL [Suspect]
     Indication: DEAFNESS
     Dosage: DOSE: 100-60 MG
     Route: 042
     Dates: start: 20080707, end: 20080715
  2. EXPAFUSIN [Suspect]
     Indication: DEAFNESS
     Route: 042
     Dates: start: 20080707, end: 20080713
  3. OLMESARTAN MEDOXOMIL [Suspect]
     Indication: HYPERTENSION
     Route: 048
     Dates: start: 20080707, end: 20080715
  4. PANTOZOL [Suspect]
     Indication: DEAFNESS
     Route: 048
     Dates: start: 20080707, end: 20080715
  5. SOLU-DECORTIN-H [Suspect]
     Indication: DEAFNESS
     Dosage: 250-40 MG
     Route: 048
     Dates: start: 20080707, end: 20080715

REACTIONS (4)
  - Hypertension [Recovered/Resolved]
  - Dyspnoea [Recovered/Resolved]
  - Pyrexia [Recovered/Resolved]
  - Chills [Recovered/Resolved]
